FAERS Safety Report 14555056 (Version 1)
Quarter: 2018Q1

REPORT INFORMATION
  Report Type: Spontaneous
  Country: US (occurrence: US)
  Receive Date: 20180220
  Receipt Date: 20180220
  Transmission Date: 20180509
  Serious: Yes (Hospitalization, Other)
  Sender: FDA-Public Use
  Company Number: US-GLAXOSMITHKLINE-US2018027590

PATIENT
  Age: 84 Year
  Sex: Female

DRUGS (7)
  1. BUDESONIDE. [Concomitant]
     Active Substance: BUDESONIDE
  2. METOPROLOL. [Concomitant]
     Active Substance: METOPROLOL
  3. ADVAIR DISKUS [Suspect]
     Active Substance: FLUTICASONE PROPIONATE\SALMETEROL XINAFOATE
     Indication: CHRONIC OBSTRUCTIVE PULMONARY DISEASE
     Dosage: 1 PUFF(S), BID
     Route: 055
     Dates: start: 2014
  4. ADVAIR DISKUS [Suspect]
     Active Substance: FLUTICASONE PROPIONATE\SALMETEROL XINAFOATE
     Dosage: UNK
     Dates: start: 201702, end: 201801
  5. OXYGEN. [Concomitant]
     Active Substance: OXYGEN
  6. XARELTO [Concomitant]
     Active Substance: RIVAROXABAN
  7. CARDIZEM [Concomitant]
     Active Substance: DILTIAZEM HYDROCHLORIDE

REACTIONS (8)
  - Cough [Recovering/Resolving]
  - Drug ineffective [Unknown]
  - Influenza [Recovering/Resolving]
  - Bronchitis [Unknown]
  - Oxygen saturation decreased [Recovering/Resolving]
  - Product use issue [Recovered/Resolved]
  - Dyspnoea [Recovering/Resolving]
  - Atrial fibrillation [Not Recovered/Not Resolved]

NARRATIVE: CASE EVENT DATE: 2014
